FAERS Safety Report 4572439-5 (Version None)
Quarter: 2005Q1

REPORT INFORMATION
  Report Type: 
  Country: None (occurrence: None)
  Receive Date: 20050207
  Receipt Date: 20050128
  Transmission Date: 20050727
  Serious: Yes (Other)
  Sender: FDA-Public Use
  Company Number: AU-GLAXOSMITHKLINE-B0369899A

PATIENT
  Age: 44 Year
  Sex: Female
  Weight: 70 kg

DRUGS (1)
  1. IMIGRAN [Suspect]
     Indication: MIGRAINE
     Dosage: 1U SINGLE DOSE
     Route: 048
     Dates: start: 19920619

REACTIONS (4)
  - CHEST PAIN [None]
  - DYSPEPSIA [None]
  - PARAESTHESIA [None]
  - PARESIS [None]
